FAERS Safety Report 21689115 (Version 1)
Quarter: 2022Q4

REPORT INFORMATION
  Report Type: Spontaneous
  Country: GB (occurrence: GB)
  Receive Date: 20221206
  Receipt Date: 20221206
  Transmission Date: 20230112
  Serious: Yes (Other)
  Sender: FDA-Public Use
  Company Number: None

PATIENT
  Age: 68 Year
  Sex: Female

DRUGS (4)
  1. NEXIUM [Suspect]
     Active Substance: ESOMEPRAZOLE MAGNESIUM
  2. FAMOTIDINE [Suspect]
     Active Substance: FAMOTIDINE
  3. PANTOPRAZOLE [Suspect]
     Active Substance: PANTOPRAZOLE
  4. OMEPRAZOLE [Suspect]
     Active Substance: OMEPRAZOLE

REACTIONS (3)
  - Dizziness [Unknown]
  - Subacute cutaneous lupus erythematosus [Unknown]
  - Myalgia [Unknown]
